FAERS Safety Report 7812657-3 (Version None)
Quarter: 2011Q4

REPORT INFORMATION
  Report Type: 
  Country: None (occurrence: None)
  Receive Date: 20111013
  Receipt Date: 20111010
  Transmission Date: 20120403
  Serious: Yes (Hospitalization)
  Sender: FDA-Public Use
  Company Number: IT-BRISTOL-MYERS SQUIBB COMPANY-16147951

PATIENT
  Sex: Male

DRUGS (1)
  1. ABATACEPT [Suspect]
     Dates: start: 20110915

REACTIONS (2)
  - PYREXIA [None]
  - ACUTE RESPIRATORY FAILURE [None]
